FAERS Safety Report 8391625-X (Version None)
Quarter: 2012Q1

REPORT INFORMATION
  Report Type: 
  Country: None (occurrence: None)
  Receive Date: 20120323
  Receipt Date: 20110617
  Transmission Date: 20120608
  Serious: Yes (Other)
  Sender: FDA-Public Use
  Company Number: 163-21880-11031378

PATIENT
  Age: 85 Year
  Sex: Female
  Weight: 81.6475 kg

DRUGS (16)
  1. PROTONIX [Concomitant]
  2. REVLIMID [Suspect]
     Indication: MYELODYSPLASTIC SYNDROME
     Dosage: 10 MG, 1 IN 1 D, PO ; 5 MG, 1 IN 1 D, PO
     Route: 048
     Dates: start: 20110112, end: 20110210
  3. REVLIMID [Suspect]
     Indication: MYELODYSPLASTIC SYNDROME
     Dosage: 10 MG, 1 IN 1 D, PO ; 5 MG, 1 IN 1 D, PO
     Route: 048
     Dates: start: 20110401, end: 20110601
  4. POTASSIUM GLUCONATE TAB [Concomitant]
  5. EXTRA STRENGTH TYLENOL [Concomitant]
  6. FORTICAL [Concomitant]
  7. FISH OIL (FISH OIL) [Concomitant]
  8. CALTRATE 600 + VITAMIN D3 (CALCITE D) [Concomitant]
  9. VITAMIN B6 [Concomitant]
  10. VITAMIN E [Concomitant]
  11. HYDROCHLOROTHIAZIDE [Concomitant]
  12. VICODIN [Concomitant]
  13. CENTRUM SILVER (CENTRUM SILVER) [Concomitant]
  14. ATENOLOL [Concomitant]
  15. BISMUTH SUBSALICYLATE [Concomitant]
  16. ASPERCREME (TROLAMINE SALICYLATE) [Concomitant]

REACTIONS (4)
  - PLATELET COUNT DECREASED [None]
  - WHITE BLOOD CELL COUNT DECREASED [None]
  - RED BLOOD CELL COUNT DECREASED [None]
  - FULL BLOOD COUNT DECREASED [None]
